FAERS Safety Report 8118014-7 (Version None)
Quarter: 2012Q1

REPORT INFORMATION
  Report Type: 
  Country: None (occurrence: None)
  Receive Date: 20120207
  Receipt Date: 20120125
  Transmission Date: 20120608
  Serious: Yes (Other)
  Sender: FDA-Public Use
  Company Number: US-ENDO PHARMACEUTICALS INC.-OPER20120041

PATIENT
  Sex: Male

DRUGS (3)
  1. OPANA ER [Suspect]
     Indication: BACK PAIN
     Route: 048
  2. MARIJUANA [Concomitant]
     Indication: DRUG ABUSE
     Dosage: UNKNOWN
     Route: 065
  3. COCAINE [Suspect]
     Indication: DRUG ABUSE
     Dosage: UNKNOWN
     Route: 065

REACTIONS (2)
  - DRUG SCREEN POSITIVE [None]
  - DRUG ABUSE [None]
